FAERS Safety Report 4676526-2 (Version None)
Quarter: 2005Q2

REPORT INFORMATION
  Report Type: 
  Country: None (occurrence: None)
  Receive Date: 20050525
  Receipt Date: 20050516
  Transmission Date: 20051028
  Serious: Yes (Hospitalization)
  Sender: FDA-Public Use
  Company Number: 2005068206

PATIENT
  Age: 63 Year
  Sex: Male
  Weight: 80.7403 kg

DRUGS (2)
  1. BEXTRA [Suspect]
     Indication: ARTHRALGIA
     Dosage: ORAL
     Route: 048
     Dates: start: 20030101, end: 20030101
  2. ATORVASTATIN [Concomitant]

REACTIONS (2)
  - HYPERSENSITIVITY [None]
  - VARICELLA [None]
